FAERS Safety Report 4305546-2 (Version None)
Quarter: 2004Q1

REPORT INFORMATION
  Report Type: 
  Country: None (occurrence: None)
  Receive Date: 20040225
  Receipt Date: 20040213
  Transmission Date: 20041129
  Serious: Yes (Hospitalization, Other)
  Sender: FDA-Public Use
  Company Number: US-JNJFOC-20031100824

PATIENT
  Age: 31 Year
  Sex: Male

DRUGS (10)
  1. REMICADE [Suspect]
     Indication: CROHN'S DISEASE
     Dosage: 490  MG, INTRAVENOUS
     Route: 042
     Dates: start: 20010905
  2. REMICADE [Suspect]
     Indication: CROHN'S DISEASE
     Dosage: 490  MG, INTRAVENOUS
     Route: 042
     Dates: start: 20011005
  3. REMICADE [Suspect]
     Indication: CROHN'S DISEASE
     Dosage: 490  MG, INTRAVENOUS
     Route: 042
     Dates: start: 20011023
  4. EFFEXOR [Suspect]
  5. PREDNISONE [Concomitant]
  6. PENTASA [Concomitant]
  7. LEVBID (HYOSCYAMINE SULFATE) [Concomitant]
  8. VICODIN [Concomitant]
  9. ACIPHEX [Concomitant]
  10. IMURAN [Concomitant]

REACTIONS (12)
  - ABDOMINAL PAIN [None]
  - ANHEDONIA [None]
  - ANXIETY [None]
  - CONDITION AGGRAVATED [None]
  - CROHN'S DISEASE [None]
  - DECREASED ACTIVITY [None]
  - DISSEMINATED TUBERCULOSIS [None]
  - DYSPEPSIA [None]
  - INJURY [None]
  - LYMPHADENOPATHY [None]
  - NAUSEA [None]
  - SPLENOMEGALY [None]
